FAERS Safety Report 8820829 (Version 1)
Quarter: 2012Q4

REPORT INFORMATION
  Report Type: 
  Country: US (occurrence: US)
  Receive Date: 20121002
  Receipt Date: 20121002
  Transmission Date: 20130627
  Serious: Yes (Other)
  Sender: FDA-Public Use
  Company Number: US-ELI_LILLY_AND_COMPANY-US201207004753

PATIENT
  Age: 89 Year
  Sex: Male
  Weight: 65.76 kg

DRUGS (2)
  1. CIALIS [Suspect]
     Indication: ERECTILE DYSFUNCTION
     Dosage: 20 mg, prn
  2. CIALIS [Suspect]
     Dosage: 5 mg, qd

REACTIONS (3)
  - Blindness unilateral [Recovered/Resolved]
  - Intentional drug misuse [Recovered/Resolved]
  - Drug ineffective [Not Recovered/Not Resolved]
